FAERS Safety Report 9474428 (Version 1)
Quarter: 2013Q3

REPORT INFORMATION
  Report Type: Spontaneous
  Country: US (occurrence: US)
  Receive Date: 20130823
  Receipt Date: 20130823
  Transmission Date: 20140515
  Serious: Yes (Hospitalization)
  Sender: FDA-Public Use
  Company Number: US-BAYER-2013-101774

PATIENT
  Sex: Female

DRUGS (1)
  1. MAGNEVIST [Suspect]
     Route: 042

REACTIONS (2)
  - Pruritus [None]
  - Feeling abnormal [None]
